FAERS Safety Report 4933354-8 (Version None)
Quarter: 2006Q1

REPORT INFORMATION
  Report Type: 
  Country: None (occurrence: None)
  Receive Date: 20060301
  Receipt Date: 20060217
  Transmission Date: 20060701
  Serious: Yes (Hospitalization)
  Sender: FDA-Public Use
  Company Number: 222386

PATIENT
  Age: 49 Year
  Sex: Female
  Weight: 75.5 kg

DRUGS (4)
  1. HERCEPTIN [Suspect]
     Indication: BREAST CANCER METASTATIC
     Dosage: 6 MG/KG, Q3W
     Dates: start: 20060203, end: 20060216
  2. PROZAC [Concomitant]
  3. PERCOCET [Concomitant]
  4. ACETAMINOPHEN [Concomitant]

REACTIONS (2)
  - CHEST PAIN [None]
  - DYSPNOEA [None]
